FAERS Safety Report 5797096-1 (Version None)
Quarter: 2008Q2

REPORT INFORMATION
  Report Type: 
  Country: None (occurrence: None)
  Receive Date: 20080627
  Receipt Date: 20080616
  Transmission Date: 20081010
  Serious: Yes (Other)
  Sender: FDA-Public Use
  Company Number: 235777J08USA

PATIENT
  Age: 39 Year
  Sex: Female

DRUGS (1)
  1. REBIF [Suspect]
     Indication: MULTIPLE SCLEROSIS
     Dosage: NOT REPORTED, NOT REPORTED, NOT REPORTED
     Dates: start: 20080502, end: 20080501

REACTIONS (6)
  - AORTIC VALVE INCOMPETENCE [None]
  - HEADACHE [None]
  - HEART VALVE INCOMPETENCE [None]
  - MALAISE [None]
  - NAUSEA [None]
  - VOMITING [None]
